FAERS Safety Report 21508377 (Version 1)
Quarter: 2022Q4

REPORT INFORMATION
  Report Type: Spontaneous
  Country: JP (occurrence: JP)
  Receive Date: 20221026
  Receipt Date: 20221026
  Transmission Date: 20230113
  Serious: Yes (Death, Hospitalization)
  Sender: FDA-Public Use
  Company Number: JP-TEVA-2022-JP-003824J

PATIENT
  Age: 73 Year
  Sex: Male

DRUGS (1)
  1. LANSOPRAZOLE [Suspect]
     Active Substance: LANSOPRAZOLE
     Indication: Product used for unknown indication
     Dosage: ???????
     Route: 065
     Dates: start: 202107, end: 202108

REACTIONS (3)
  - Sepsis [Fatal]
  - Toxic epidermal necrolysis [Unknown]
  - Agranulocytosis [Unknown]
